FAERS Safety Report 7458921-1 (Version None)
Quarter: 2011Q2

REPORT INFORMATION
  Report Type: 
  Country: None (occurrence: None)
  Receive Date: 20110504
  Receipt Date: 20110423
  Transmission Date: 20111010
  Serious: Yes (Other)
  Sender: FDA-Public Use
  Company Number: CA-ELI_LILLY_AND_COMPANY-CA201009007965

PATIENT
  Age: 54 Year
  Sex: Female

DRUGS (26)
  1. DOXEPIN [Concomitant]
  2. VALACICLOVIR [Concomitant]
  3. VITAMIN B-12 [Concomitant]
  4. FORTEO [Suspect]
     Indication: OSTEOPOROSIS
     Dosage: 20 UG, DAILY (1/D)
     Route: 058
     Dates: start: 20100401
  5. HYZAAR [Concomitant]
  6. ADVAIR DISKUS 100/50 [Concomitant]
  7. PREDNISONE [Concomitant]
  8. LACTULOSE [Concomitant]
  9. AMITRIPTYLINE [Concomitant]
  10. TOPICORT [Concomitant]
  11. ALBUTEROL SULFATE AUTOHALER [Concomitant]
  12. CORTEF [Concomitant]
  13. DOCUSATE SODIUM [Concomitant]
  14. LYRICA [Concomitant]
  15. TYLENOL (CAPLET) [Concomitant]
  16. SYNTHROID [Concomitant]
  17. CALCIUM +VIT D [Concomitant]
  18. FORTEO [Suspect]
     Dosage: 20 UG, DAILY (1/D)
     Route: 058
  19. HYDROXYZINE [Concomitant]
  20. AMLODIPINE BESYLATE [Concomitant]
  21. FOLIC ACID [Concomitant]
  22. SPIRIVA [Concomitant]
  23. SENNOSIDE [Concomitant]
  24. CLOTRIMAZOLE [Concomitant]
  25. OXAZEPAM [Concomitant]
  26. D-TABS [Concomitant]

REACTIONS (6)
  - HIP FRACTURE [None]
  - NAIL DISORDER [None]
  - NAIL DISCOLOURATION [None]
  - ARTHROPATHY [None]
  - FALL [None]
  - IMPAIRED HEALING [None]
